FAERS Safety Report 8176842-6 (Version None)
Quarter: 2012Q1

REPORT INFORMATION
  Report Type: 
  Country: None (occurrence: None)
  Receive Date: 20120124
  Receipt Date: 20110818
  Transmission Date: 20120608
  Serious: Yes (Other)
  Sender: FDA-Public Use
  Company Number: WAES 1108USA02338

PATIENT
  Age: 50 Year
  Sex: Female

DRUGS (2)
  1. INVANZ [Suspect]
     Dosage: 1 GM/DAILY/IV
     Route: 042
  2. MORPHINE [Concomitant]

REACTIONS (1)
  - BLOOD PRESSURE DECREASED [None]
